FAERS Safety Report 9685605 (Version 1)
Quarter: 2013Q4

REPORT INFORMATION
  Report Type: Spontaneous
  Country: US (occurrence: US)
  Receive Date: 20131113
  Receipt Date: 20131113
  Transmission Date: 20140711
  Serious: No
  Sender: FDA-Public Use
  Company Number: US-GLAXOSMITHKLINE-A0998619A

PATIENT
  Age: 43 Year
  Sex: Female

DRUGS (2)
  1. COREG [Suspect]
     Indication: MYOCARDIAL INFARCTION
     Dosage: 10MG PER DAY
  2. MULTIPLE MEDICATIONS [Concomitant]

REACTIONS (5)
  - Fatigue [Recovered/Resolved]
  - Lethargy [Unknown]
  - Extrasystoles [Unknown]
  - Dyspnoea [Unknown]
  - Cardiac disorder [Unknown]
